FAERS Safety Report 7548360-7 (Version None)
Quarter: 2011Q2

REPORT INFORMATION
  Report Type: 
  Country: None (occurrence: None)
  Receive Date: 20110524
  Receipt Date: 20110330
  Transmission Date: 20111010
  Serious: No
  Sender: FDA-Public Use
  Company Number: 026766

PATIENT
  Sex: Female

DRUGS (2)
  1. VITAMIN B12 /00056201/ [Concomitant]
  2. CIMZIA [Suspect]
     Indication: CROHN'S DISEASE
     Dosage: (400 MG 1X/4 WEEKS SUBCUTANEOUS)
     Route: 058
     Dates: start: 20090102

REACTIONS (3)
  - GINGIVAL BLEEDING [None]
  - CONSTIPATION [None]
  - ASTHENIA [None]
